FAERS Safety Report 6805393-3 (Version None)
Quarter: 2010Q2

REPORT INFORMATION
  Report Type: 
  Country: None (occurrence: None)
  Receive Date: 20100628
  Receipt Date: 20071203
  Transmission Date: 20101027
  Serious: Yes (Other)
  Sender: FDA-Public Use
  Company Number: US-PFIZER INC-2007093686

PATIENT
  Sex: Male
  Weight: 95.454 kg

DRUGS (5)
  1. CADUET [Suspect]
     Indication: HYPERTENSION
     Dosage: 5/10 MG
     Dates: start: 20071030, end: 20071104
  2. CADUET [Suspect]
     Indication: BLOOD CHOLESTEROL INCREASED
  3. CADUET [Suspect]
     Indication: HYPERLIPIDAEMIA
  4. NEXIUM [Concomitant]
  5. CENTRUM [Concomitant]

REACTIONS (6)
  - CONTUSION [None]
  - DYSPNOEA [None]
  - OEDEMA PERIPHERAL [None]
  - SINUS BRADYCARDIA [None]
  - URTICARIA [None]
  - WEIGHT INCREASED [None]
